FAERS Safety Report 18783408 (Version 1)
Quarter: 2021Q1

REPORT INFORMATION
  Report Type: Spontaneous
  Country: US (occurrence: US)
  Receive Date: 20210125
  Receipt Date: 20210125
  Transmission Date: 20210419
  Serious: Yes (Other)
  Sender: FDA-Public Use
  Company Number: US-PFIZER INC-2021045760

PATIENT
  Age: 18 Year
  Sex: Male
  Weight: 82.54 kg

DRUGS (1)
  1. XELJANZ XR [Suspect]
     Active Substance: TOFACITINIB CITRATE
     Indication: COLITIS ULCERATIVE
     Dosage: 22 MG, DAILY
     Route: 048
     Dates: start: 20200801

REACTIONS (3)
  - Abnormal faeces [Unknown]
  - Haematochezia [Unknown]
  - Rectal haemorrhage [Unknown]
